FAERS Safety Report 17779442 (Version 3)
Quarter: 2020Q2

REPORT INFORMATION
  Report Type: Spontaneous
  Country: US (occurrence: US)
  Receive Date: 20200513
  Receipt Date: 20200601
  Transmission Date: 20200714
  Serious: Yes (Other)
  Sender: FDA-Public Use
  Company Number: US-SA-2020SA116774

PATIENT

DRUGS (1)
  1. DUPIXENT [Suspect]
     Active Substance: DUPILUMAB
     Indication: ROSACEA
     Dosage: 300 MG, QOW

REACTIONS (4)
  - Retinal injury [Unknown]
  - Injection site pain [Unknown]
  - Product use in unapproved indication [Unknown]
  - Cataract operation [Unknown]
